FAERS Safety Report 18857502 (Version 1)
Quarter: 2021Q1

REPORT INFORMATION
  Report Type: Report from Study
  Country: DE (occurrence: DE)
  Receive Date: 20210208
  Receipt Date: 20210208
  Transmission Date: 20210420
  Serious: Yes (Hospitalization)
  Sender: FDA-Public Use
  Company Number: DE-ROCHE-2759706

PATIENT
  Age: 72 Year
  Sex: Female
  Weight: 74 kg

DRUGS (14)
  1. RAMIPRIL. [Concomitant]
     Active Substance: RAMIPRIL
     Dates: start: 20200531
  2. PERTUZUMAB. [Suspect]
     Active Substance: PERTUZUMAB
     Indication: BREAST CANCER METASTATIC
  3. TRASTUZUMAB. [Suspect]
     Active Substance: TRASTUZUMAB
     Indication: BREAST CANCER METASTATIC
  4. BISOHEXAL [Concomitant]
     Active Substance: BISOPROLOL FUMARATE
     Dates: start: 20201027
  5. LOPERAMIDE [Concomitant]
     Active Substance: LOPERAMIDE
     Dates: start: 20200504, end: 20200529
  6. NIFEDIPINE. [Concomitant]
     Active Substance: NIFEDIPINE
     Dates: start: 20200512, end: 20200512
  7. RIBOCICLIB. [Suspect]
     Active Substance: RIBOCICLIB
     Indication: BREAST CANCER METASTATIC
  8. RAMIPRIL. [Concomitant]
     Active Substance: RAMIPRIL
     Dates: start: 20200519, end: 20200530
  9. TRASTUZUMAB. [Suspect]
     Active Substance: TRASTUZUMAB
     Indication: BREAST CANCER METASTATIC
     Dosage: DATE OF LAST DOSE PRIOR TO SAE: 09/DEC/2020
     Route: 042
     Dates: start: 20200420
  10. PERENTEROL [Concomitant]
     Active Substance: SACCHAROMYCES CEREVISIAE
     Dates: end: 20200529
  11. PERTUZUMAB. [Suspect]
     Active Substance: PERTUZUMAB
     Indication: BREAST CANCER METASTATIC
     Dosage: DATE OF LAST DOSE PRIOR TO SAE: 09/DEC/2020
     Route: 042
     Dates: start: 20200420
  12. RIBOCICLIB. [Suspect]
     Active Substance: RIBOCICLIB
     Indication: BREAST CANCER METASTATIC
     Dosage: DATE OF LAST DOSE PRIOR TO SAE: 10/DEC/2020
     Route: 048
     Dates: start: 20200420
  13. BIPRETERAX [Concomitant]
     Active Substance: INDAPAMIDE\PERINDOPRIL
     Dates: start: 20200616, end: 20200717
  14. CANDESARTAN. [Concomitant]
     Active Substance: CANDESARTAN
     Dates: start: 20200717

REACTIONS (1)
  - Acute coronary syndrome [Recovered/Resolved]

NARRATIVE: CASE EVENT DATE: 20201211
